FAERS Safety Report 10716278 (Version 1)
Quarter: 2015Q1

REPORT INFORMATION
  Report Type: Spontaneous
  Country: US (occurrence: None)
  Receive Date: 20150115
  Receipt Date: 20150115
  Transmission Date: 20150721
  Serious: Yes (Life-Threatening, Hospitalization)
  Sender: FDA-Public Use
  Company Number: None

PATIENT
  Age: 28 Year
  Sex: Female
  Weight: 60.33 kg

DRUGS (4)
  1. DEXCOM CGM [Concomitant]
  2. INVOKANA [Suspect]
     Active Substance: CANAGLIFLOZIN
     Indication: HYPERGLYCAEMIA
     Dosage: ONE PILL QD ORAL
     Route: 048
     Dates: start: 20141111, end: 20150113
  3. INVOKANA [Suspect]
     Active Substance: CANAGLIFLOZIN
     Indication: TYPE 1 DIABETES MELLITUS
     Dosage: ONE PILL QD ORAL
     Route: 048
     Dates: start: 20141111, end: 20150113
  4. OMNIPOD INSULIN PUMP [Concomitant]
     Active Substance: DEVICE

REACTIONS (2)
  - Alcohol use [None]
  - Diabetic ketoacidosis [None]

NARRATIVE: CASE EVENT DATE: 20150107
